FAERS Safety Report 4980959-4 (Version None)
Quarter: 2006Q2

REPORT INFORMATION
  Report Type: 
  Country: None (occurrence: None)
  Receive Date: 20060418
  Receipt Date: 20060330
  Transmission Date: 20061013
  Serious: Yes (Hospitalization, Other)
  Sender: FDA-Public Use
  Company Number: US200512004062

PATIENT
  Age: 72 Year
  Sex: Female

DRUGS (8)
  1. FORTEO [Suspect]
     Indication: OSTEOPOROSIS
     Dosage: DAILY (1/D)
     Dates: start: 20050101
  2. FORTEO [Concomitant]
  3. FORTEO [Concomitant]
  4. ALLEGRA [Concomitant]
  5. PRILOSEC [Concomitant]
  6. ULTRACET [Concomitant]
  7. ALDACTONE [Concomitant]
  8. SYNTHROID [Concomitant]

REACTIONS (3)
  - BONE PAIN [None]
  - CHOLECYSTITIS [None]
  - PHARMACEUTICAL PRODUCT COMPLAINT [None]
